FAERS Safety Report 5163614-X (Version None)
Quarter: 2006Q4

REPORT INFORMATION
  Report Type: 
  Country: None (occurrence: None)
  Receive Date: 20061127
  Receipt Date: 20061127
  Transmission Date: 20070319
  Serious: No
  Sender: FDA-Public Use
  Company Number: None

PATIENT
  Sex: Female

DRUGS (3)
  1. ERBITUX [Suspect]
     Indication: PANCREATIC CARCINOMA
     Dosage: SEE IMAGE  WEEKLY
  2. GEMZAR [Suspect]
     Indication: PANCREATIC CARCINOMA
     Dosage: 50 MG/M2  2X A WEEK
  3. RADIATION [Concomitant]

REACTIONS (1)
  - DEEP VEIN THROMBOSIS [None]
